FAERS Safety Report 7440828-7 (Version None)
Quarter: 2011Q2

REPORT INFORMATION
  Report Type: 
  Country: None (occurrence: None)
  Receive Date: 20110427
  Receipt Date: 20110405
  Transmission Date: 20111010
  Serious: Yes (Hospitalization)
  Sender: FDA-Public Use
  Company Number: FR-PFIZER INC-HQWYE168102NOV06

PATIENT
  Age: 90 Year
  Sex: Female

DRUGS (12)
  1. DEROXAT [Suspect]
     Dosage: 10 MG, 1X/DAY
     Route: 048
     Dates: start: 20060524, end: 20060614
  2. BUFLOMEDIL [Suspect]
     Dosage: 300 MG, 2X/DAY
     Route: 048
     Dates: end: 20060615
  3. PLAVIX [Concomitant]
     Dosage: 1 DF, 1X/DAY
     Route: 048
  4. MODURETIC 5-50 [Suspect]
     Dosage: 0.5 DF, 1X/DAY
     Route: 048
     Dates: end: 20060615
  5. INIPOMP [Suspect]
     Dosage: 40 MG, 1X/DAY
     Route: 048
     Dates: end: 20060615
  6. FLAGYL [Concomitant]
     Dosage: 500 MG, 2X/DAY
     Route: 048
     Dates: start: 20060614
  7. FORLAX [Suspect]
     Dosage: 1 DF, 1X/DAY
     Route: 048
     Dates: end: 20060615
  8. VASTAREL [Concomitant]
     Dosage: 1 DF, 3X/DAY
     Route: 048
  9. XALATAN [Concomitant]
     Dosage: 1 DF, 1X/DAY
     Route: 031
  10. LEXOMIL [Concomitant]
     Dosage: 0.25 DF, 2X/DAY
     Route: 048
  11. AMLODIPINE BESYLATE [Suspect]
     Dosage: 5 MG, 1X/DAY
     Route: 048
     Dates: end: 20060615
  12. CLAMOXYL [Concomitant]
     Dosage: 1 G, 2X/DAY
     Route: 048
     Dates: start: 20060614

REACTIONS (2)
  - HYPONATRAEMIA [None]
  - VOMITING [None]
